FAERS Safety Report 19549236 (Version 2)
Quarter: 2022Q2

REPORT INFORMATION
  Report Type: Spontaneous
  Country: US (occurrence: US)
  Receive Date: 20210714
  Receipt Date: 20220613
  Transmission Date: 20220721
  Serious: No
  Sender: FDA-Public Use
  Company Number: US-PFIZER INC-2021445725

PATIENT
  Age: 54 Year
  Sex: Female
  Weight: 90.72 kg

DRUGS (1)
  1. CYTOMEL [Suspect]
     Active Substance: LIOTHYRONINE SODIUM
     Indication: Autoimmune thyroiditis
     Dosage: 25MCG, ONE TABLET IN THE MORNING AND 25MCG ONE TABLET IN THE AFTERNOON AROUND 3:00PM BY MOUTH
     Route: 048

REACTIONS (3)
  - Blood test abnormal [Unknown]
  - Hypoaesthesia [Unknown]
  - Peripheral swelling [Unknown]
